APPROVED DRUG PRODUCT: FUDR
Active Ingredient: FLOXURIDINE
Strength: 500MG/VIAL **Federal Register determination that product was not discontinued or withdrawn for safety or effectiveness reasons**
Dosage Form/Route: INJECTABLE;INJECTION
Application: N016929 | Product #001
Applicant: HOSPIRA INC
Approved: Approved Prior to Jan 1, 1982 | RLD: Yes | RS: No | Type: DISCN